FAERS Safety Report 9174817 (Version 1)
Quarter: 2013Q1

REPORT INFORMATION
  Report Type: Spontaneous
  Country: US (occurrence: US)
  Receive Date: 20130320
  Receipt Date: 20130320
  Transmission Date: 20140127
  Serious: No
  Sender: FDA-Public Use
  Company Number: US-009507513-1303USA008234

PATIENT
  Sex: Male
  Weight: 101.6 kg

DRUGS (8)
  1. MIRTAZAPINE [Suspect]
     Indication: DEPRESSION
     Dosage: 30 MG, QPM
     Route: 048
  2. PEGINTRON [Concomitant]
     Indication: HEPATITIS C
     Dosage: 150 MICROGRAM, QW
     Route: 058
     Dates: start: 20121119
  3. REBETOL [Concomitant]
     Indication: HEPATITIS C
     Dosage: 1000 MG ONCE DAILY
     Route: 048
     Dates: start: 20121119
  4. CITALOPRAM [Concomitant]
     Indication: DEPRESSION
     Dosage: UNK, QD
     Route: 048
     Dates: start: 20120101, end: 20130301
  5. CELEXA [Concomitant]
     Indication: DEPRESSION
     Dosage: UNK
  6. CELEXA [Concomitant]
     Dosage: 20 MG, QD
  7. ESCITALOPRAM [Concomitant]
     Indication: DEPRESSION
     Dosage: 10 MG, QD
     Route: 048
  8. KLONOPIN [Concomitant]

REACTIONS (1)
  - Fatigue [Recovering/Resolving]
